FAERS Safety Report 14368619 (Version 1)
Quarter: 2018Q1

REPORT INFORMATION
  Report Type: Other
  Country: None (occurrence: US)
  Receive Date: 20180109
  Receipt Date: 20180109
  Transmission Date: 20180509
  Serious: Yes (Other)
  Sender: FDA-Public Use
  Company Number: US-THE PROACTIV LLC-2039763

PATIENT
  Age: 16 Year
  Sex: Male

DRUGS (7)
  1. ALBUTEROL NEBS [Concomitant]
  2. PROACTIV EMERGENCY BLEMISH RELIEF [Suspect]
     Active Substance: BENZOYL PEROXIDE
     Route: 061
     Dates: start: 201708, end: 20171218
  3. PROACTIV REPAIRING TREATMENT [Suspect]
     Active Substance: BENZOYL PEROXIDE
     Route: 061
     Dates: start: 201708, end: 20171218
  4. ALBUTEROL. [Concomitant]
     Active Substance: ALBUTEROL
  5. PROACTIV SKIN PURIFYING MASK [Suspect]
     Active Substance: SULFUR
     Route: 061
     Dates: start: 201708, end: 20171218
  6. PROACTIV RENEWING CLEANSER [Suspect]
     Active Substance: BENZOYL PEROXIDE
     Indication: ACNE
     Route: 061
     Dates: start: 201708, end: 20171218
  7. SINGULAIR [Concomitant]
     Active Substance: MONTELUKAST SODIUM

REACTIONS (2)
  - Eye swelling [Recovering/Resolving]
  - Dyspnoea [Recovering/Resolving]

NARRATIVE: CASE EVENT DATE: 20171201
